FAERS Safety Report 8037905-9 (Version None)
Quarter: 2012Q1

REPORT INFORMATION
  Report Type: 
  Country: None (occurrence: None)
  Receive Date: 20120105
  Receipt Date: 20111227
  Transmission Date: 20120608
  Serious: Yes (Hospitalization, Disabling, Other)
  Sender: FDA-Public Use
  Company Number: 2011SP014621

PATIENT
  Age: 38 Year
  Sex: Female
  Weight: 86.1834 kg

DRUGS (9)
  1. ZANAFLEX [Concomitant]
  2. AXERT [Concomitant]
  3. XANAX [Concomitant]
  4. VICODIN [Concomitant]
  5. KEPPRA [Concomitant]
  6. SKELAXIN [Concomitant]
  7. NUVARING [Suspect]
     Indication: CONTRACEPTION
     Dates: start: 20080101, end: 20090426
  8. NUVARING [Suspect]
     Indication: MIGRAINE
     Dates: start: 20080101, end: 20090426
  9. DIAMOX SRC [Concomitant]

REACTIONS (18)
  - PNEUMONIA [None]
  - HYPOTENSION [None]
  - VOMITING [None]
  - LEFT VENTRICULAR DYSFUNCTION [None]
  - DEEP VEIN THROMBOSIS [None]
  - OVARIAN CYST [None]
  - SMEAR CERVIX ABNORMAL [None]
  - NAUSEA [None]
  - POLYCYSTIC OVARIES [None]
  - MALAISE [None]
  - MENORRHAGIA [None]
  - PULMONARY HYPERTENSION [None]
  - BLOOD TRIGLYCERIDES INCREASED [None]
  - RETCHING [None]
  - ALOPECIA [None]
  - SINUS BRADYCARDIA [None]
  - FATIGUE [None]
  - PULMONARY EMBOLISM [None]
